FAERS Safety Report 15461381 (Version 2)
Quarter: 2018Q4

REPORT INFORMATION
  Report Type: Report from Study
  Country: DE (occurrence: DE)
  Receive Date: 20181003
  Receipt Date: 20181112
  Transmission Date: 20190204
  Serious: Yes (Hospitalization, Other)
  Sender: FDA-Public Use
  Company Number: DE-TAKEDA-2018TUS028620

PATIENT
  Age: 28 Year
  Sex: Female
  Weight: 50 kg

DRUGS (4)
  1. PENTASA [Concomitant]
     Active Substance: MESALAMINE
     Indication: COLITIS ULCERATIVE
     Dosage: 2 G, QD
     Dates: start: 20180911
  2. SALOFALK                           /00747601/ [Concomitant]
     Active Substance: MESALAMINE
     Indication: COLITIS ULCERATIVE
     Dosage: 4 G, QD
     Dates: start: 20180509, end: 20180901
  3. VEDOLIZUMAB [Suspect]
     Active Substance: VEDOLIZUMAB
     Indication: COLITIS ULCERATIVE
     Dosage: 300 MG, UNK
     Route: 042
     Dates: start: 20180807
  4. DEKRISTOL [Concomitant]
     Active Substance: CHOLECALCIFEROL
     Indication: VITAMIN D DEFICIENCY
     Dosage: 20000 IU, 1/WEEK

REACTIONS (3)
  - Condition aggravated [Unknown]
  - Rectal prolapse [Unknown]
  - Constipation [Unknown]

NARRATIVE: CASE EVENT DATE: 20180915
